FAERS Safety Report 9768337 (Version 1)
Quarter: 2013Q4

REPORT INFORMATION
  Report Type: Spontaneous
  Country: GB (occurrence: GB)
  Receive Date: 20131217
  Receipt Date: 20131217
  Transmission Date: 20140711
  Serious: Yes (Death)
  Sender: FDA-Public Use
  Company Number: GB-WATSON-2013-23006

PATIENT
  Age: 86 Year
  Sex: Female
  Weight: 70 kg

DRUGS (1)
  1. METRONIDAZOLE (UNKNOWN) [Suspect]
     Indication: ABDOMINAL INFECTION
     Dosage: 500 MG, UNKNOWN
     Route: 042
     Dates: start: 20131025, end: 20131025

REACTIONS (2)
  - Anaphylactic reaction [Fatal]
  - Drug administration error [Unknown]
